FAERS Safety Report 4627109-1 (Version None)
Quarter: 2005Q2

REPORT INFORMATION
  Report Type: 
  Country: None (occurrence: None)
  Receive Date: 20050401
  Receipt Date: 20050401
  Transmission Date: 20051028
  Serious: No
  Sender: FDA-Public Use
  Company Number: None

PATIENT
  Sex: Male
  Weight: 74.3899 kg

DRUGS (11)
  1. GATIFLOXACIN [Suspect]
     Indication: URINARY TRACT INFECTION
     Dosage: 400 MG DAILY  ORAL
     Route: 048
     Dates: start: 20041112, end: 20041114
  2. MELOXICAM 15 MG BOEHRINGER INGELHEIM [Suspect]
     Indication: PAIN
     Dosage: 15 MG DAILY ORAL
     Route: 048
     Dates: start: 20041109, end: 20041116
  3. DOCUSATE [Concomitant]
  4. METOPROLOL TARTRATE [Concomitant]
  5. TAMSULOSIN [Concomitant]
  6. CEFAZOLIN [Concomitant]
  7. INFLUENZA VACCINE [Concomitant]
  8. PROMETHAZINE [Concomitant]
  9. ACETAMINOPHEN [Concomitant]
  10. MORPHINE [Concomitant]
  11. PANCRELIPASE [Concomitant]

REACTIONS (3)
  - HALLUCINATION, VISUAL [None]
  - SPEECH DISORDER [None]
  - TONGUE DISORDER [None]
